FAERS Safety Report 7625569-5 (Version None)
Quarter: 2011Q3

REPORT INFORMATION
  Report Type: 
  Country: None (occurrence: None)
  Receive Date: 20110713
  Receipt Date: 20110628
  Transmission Date: 20111222
  Serious: Yes (Death, Other)
  Sender: FDA-Public Use
  Company Number: AUR-APL-2011-03605

PATIENT
  Sex: Female

DRUGS (4)
  1. CITALOPRAM HYDROBROMIDE [Suspect]
     Indication: PRODUCT USED FOR UNKNOWN INDICATION
     Dosage: 20 MG
  2. MIRTAZAPINE [Suspect]
     Indication: PRODUCT USED FOR UNKNOWN INDICATION
     Dosage: 45 MG
  3. ASPIRIN [Concomitant]
  4. LITHIUM CARBONATE [Concomitant]

REACTIONS (7)
  - SEROTONIN SYNDROME [None]
  - AGITATION [None]
  - COMPLETED SUICIDE [None]
  - ANXIETY [None]
  - ASPHYXIA [None]
  - ILL-DEFINED DISORDER [None]
  - INCORRECT DOSE ADMINISTERED [None]
